FAERS Safety Report 5013919-8 (Version None)
Quarter: 2006Q2

REPORT INFORMATION
  Report Type: 
  Country: None (occurrence: None)
  Receive Date: 20060525
  Receipt Date: 20060510
  Transmission Date: 20061013
  Serious: Yes (Death)
  Sender: FDA-Public Use
  Company Number: BR200605002130

PATIENT
  Age: 16 Year
  Sex: Male

DRUGS (1)
  1. ZYPREXA [Suspect]
     Indication: PSYCHOTIC DISORDER
     Dosage: 30 MG, DAILY (1/D), ORAL
     Route: 048

REACTIONS (3)
  - CARDIAC ARREST [None]
  - PRESCRIBED OVERDOSE [None]
  - SUDDEN DEATH [None]
